FAERS Safety Report 23929633 (Version 1)
Quarter: 2024Q2

REPORT INFORMATION
  Report Type: Spontaneous
  Country: US (occurrence: US)
  Receive Date: 20240601
  Receipt Date: 20240601
  Transmission Date: 20240715
  Serious: No
  Sender: FDA-Public Use
  Company Number: US-RADIUS HEALTH INC.-2024US002704

PATIENT
  Age: 71 Year
  Sex: Female

DRUGS (2)
  1. TYMLOS [Suspect]
     Active Substance: ABALOPARATIDE
     Indication: Product used for unknown indication
     Dosage: 80 MICROGRAM, QD
     Route: 058
     Dates: start: 202308
  2. LISINOPRIL [Concomitant]
     Active Substance: LISINOPRIL
     Indication: Hypertension

REACTIONS (6)
  - Abdominal mass [Not Recovered/Not Resolved]
  - Loss of personal independence in daily activities [Not Recovered/Not Resolved]
  - Abdominal pain [Not Recovered/Not Resolved]
  - Injection site bruising [Recovering/Resolving]
  - Injection site erythema [Unknown]
  - Wrong technique in product usage process [Unknown]

NARRATIVE: CASE EVENT DATE: 20240301
